FAERS Safety Report 4308648-X (Version None)
Quarter: 2004Q1

REPORT INFORMATION
  Report Type: 
  Country: None (occurrence: None)
  Receive Date: 20040301
  Receipt Date: 20040109
  Transmission Date: 20041129
  Serious: Yes (Other)
  Sender: FDA-Public Use
  Company Number: A0442444A

PATIENT
  Age: 25 Year
  Sex: Female
  Weight: 47.5823 kg

DRUGS (1)
  1. NICODERM CQ [Suspect]
     Indication: EX-SMOKER
     Dosage: 21 MG / PER DAY/ TRANSDERMAL
     Route: 062
     Dates: start: 20031202, end: 20031209

REACTIONS (10)
  - APPLICATION SITE PAIN [None]
  - DIZZINESS [None]
  - DYSPEPSIA [None]
  - FALL [None]
  - LOOSE STOOLS [None]
  - LOSS OF CONSCIOUSNESS [None]
  - LOSS OF CONTROL OF LEGS [None]
  - MYALGIA [None]
  - NAUSEA [None]
  - TINNITUS [None]
